FAERS Safety Report 25625143 (Version 1)
Quarter: 2025Q3

REPORT INFORMATION
  Report Type: Spontaneous
  Country: US (occurrence: US)
  Receive Date: 20250731
  Receipt Date: 20250731
  Transmission Date: 20251021
  Serious: No
  Sender: PRINSTON PHARMACEUTICAL
  Company Number: US-PRINSTON PHARMACEUTICAL INC.-2024PRN00351

PATIENT
  Age: 91 Year
  Sex: Male
  Weight: 67.585 kg

DRUGS (5)
  1. CLONAZEPAM [Suspect]
     Active Substance: CLONAZEPAM
     Indication: Panic disorder
     Dosage: 0.25 MG, 2X/DAY
     Dates: start: 20240918
  2. CLONAZEPAM [Suspect]
     Active Substance: CLONAZEPAM
     Indication: Anxiety
  3. PAXIL [Concomitant]
     Active Substance: PAROXETINE HYDROCHLORIDE
  4. UNSPECIFIED INGREDIENT [Concomitant]
     Active Substance: UNSPECIFIED INGREDIENT
  5. BABY ASPIRIN [ACETYLSALICYLIC ACID] [Concomitant]

REACTIONS (11)
  - Balance disorder [Unknown]
  - Nausea [Unknown]
  - Illness [Unknown]
  - Sleep disorder [Unknown]
  - Feeling abnormal [Unknown]
  - Withdrawal syndrome [Unknown]
  - Presyncope [Unknown]
  - Dizziness [Unknown]
  - Abdominal discomfort [Unknown]
  - Product substitution issue [Unknown]
  - Drug effect less than expected [Unknown]

NARRATIVE: CASE EVENT DATE: 20240918
